FAERS Safety Report 7543640-3 (Version None)
Quarter: 2011Q2

REPORT INFORMATION
  Report Type: 
  Country: None (occurrence: None)
  Receive Date: 20110613
  Receipt Date: 20030130
  Transmission Date: 20111010
  Serious: Yes (Hospitalization)
  Sender: FDA-Public Use
  Company Number: PHFR2002GB03339

PATIENT
  Sex: Female

DRUGS (5)
  1. GAVISCON [Concomitant]
     Dosage: 30 ML/DAY
     Route: 048
  2. HYOSCINE HYDROBROMIDE [Concomitant]
     Dosage: 150 UG/DAY
     Route: 048
  3. FERROUS SULFATE TAB [Concomitant]
     Indication: IRON DEFICIENCY ANAEMIA
     Dosage: 600 MG/DAY
     Route: 048
  4. LACTULOSE [Concomitant]
     Dosage: 40 ML/DAY
     Route: 048
  5. CLOZAPINE [Suspect]
     Indication: SCHIZOPHRENIA
     Dosage: 500 MG/DAY
     Route: 048
     Dates: start: 20001201

REACTIONS (1)
  - TOOTH ABSCESS [None]
